FAERS Safety Report 6678844-5 (Version None)
Quarter: 2010Q2

REPORT INFORMATION
  Report Type: 
  Country: None (occurrence: None)
  Receive Date: 20100412
  Receipt Date: 20100412
  Transmission Date: 20101027
  Serious: Yes (Other)
  Sender: FDA-Public Use
  Company Number: None

PATIENT
  Sex: Female
  Weight: 76.4 kg

DRUGS (13)
  1. SOLIRIS [Suspect]
     Indication: HAEMOLYTIC URAEMIC SYNDROME
     Dosage: 1200MG EVERY 2 WKS IV
     Route: 042
     Dates: start: 20100319
  2. SOLIRIS [Suspect]
     Indication: PROPHYLAXIS AGAINST TRANSPLANT REJECTION
     Dosage: 1200MG EVERY 2 WKS IV
     Route: 042
     Dates: start: 20100319
  3. SOLIRIS [Suspect]
     Indication: THROMBOTIC MICROANGIOPATHY
     Dosage: 1200MG EVERY 2 WKS IV
     Route: 042
     Dates: start: 20100405
  4. COREG [Concomitant]
  5. LORAZEPAM [Concomitant]
  6. MAGNESIUM OXIDE [Concomitant]
  7. CELLCEPT [Concomitant]
  8. NIFEDIPINE [Concomitant]
  9. PROTONIX [Concomitant]
  10. POTASSIUM PHOSPHATES [Concomitant]
  11. PREDNISONE [Concomitant]
  12. ASPIRIN [Concomitant]
  13. MULTI-VITAMIN [Concomitant]

REACTIONS (1)
  - HERPES ZOSTER DISSEMINATED [None]
